FAERS Safety Report 4611160-1 (Version None)
Quarter: 2005Q1

REPORT INFORMATION
  Report Type: 
  Country: None (occurrence: None)
  Receive Date: 20050317
  Receipt Date: 20050304
  Transmission Date: 20050727
  Serious: Yes (Hospitalization, Other)
  Sender: FDA-Public Use
  Company Number: DE-JNJFOC-20050301466

PATIENT
  Age: 59 Year
  Sex: Female

DRUGS (20)
  1. HALDOL [Suspect]
     Route: 049
  2. HALDOL [Suspect]
     Indication: SCHIZOPHRENIA
     Route: 049
  3. ORFIRIL [Suspect]
     Route: 049
  4. ORFIRIL [Suspect]
     Route: 049
  5. ORFIRIL [Suspect]
     Route: 049
  6. ORFIRIL [Suspect]
     Route: 049
  7. ORFIRIL [Suspect]
     Route: 049
  8. ORFIRIL [Suspect]
     Route: 049
  9. ORFIRIL [Suspect]
     Indication: DRUG USE FOR UNKNOWN INDICATION
     Dosage: DOSE INCREASED FROM 0-1800 MG
     Route: 049
  10. ATOSIL [Suspect]
     Route: 049
  11. ATOSIL [Suspect]
     Route: 049
  12. ATOSIL [Suspect]
     Route: 049
  13. ATOSIL [Suspect]
     Indication: DRUG USE FOR UNKNOWN INDICATION
     Dosage: START DATE: FOR MONTHS
     Route: 049
  14. CIATYL Z [Concomitant]
     Route: 049
  15. CIATYL Z [Concomitant]
     Route: 049
  16. CIATYL Z [Concomitant]
     Route: 049
  17. CIATYL Z [Concomitant]
     Route: 049
  18. CIATYL Z [Concomitant]
     Route: 049
  19. REMESTAN [Concomitant]
     Dosage: DOSE UNKNOWN
     Route: 049
  20. REMESTAN [Concomitant]
     Dosage: START DATE: FOR MONTHS
     Route: 049

REACTIONS (6)
  - ANAEMIA [None]
  - BONE MARROW TOXICITY [None]
  - IRON DEFICIENCY [None]
  - LEUKOPENIA [None]
  - LYMPHOPENIA [None]
  - NEUTROPENIA [None]
